FAERS Safety Report 7881743-4 (Version None)
Quarter: 2011Q4

REPORT INFORMATION
  Report Type: 
  Country: None (occurrence: None)
  Receive Date: 20111101
  Receipt Date: 20110526
  Transmission Date: 20120403
  Serious: No
  Sender: FDA-Public Use
  Company Number: US-AMGEN-USASP2011027518

PATIENT
  Age: 29 Year
  Sex: Female

DRUGS (2)
  1. ENBREL [Suspect]
     Indication: RHEUMATOID ARTHRITIS
     Dosage: 50 MG, Q2WK
     Dates: start: 20090501, end: 20110401
  2. ANTIBIOTICS [Concomitant]

REACTIONS (4)
  - SINUSITIS [None]
  - ANAEMIA [None]
  - NASAL CYST [None]
  - INJECTION SITE PAIN [None]
